FAERS Safety Report 5424738-2 (Version None)
Quarter: 2007Q3

REPORT INFORMATION
  Report Type: 
  Country: None (occurrence: None)
  Receive Date: 20070725
  Receipt Date: 20070122
  Transmission Date: 20080115
  Serious: Yes (Hospitalization)
  Sender: FDA-Public Use
  Company Number: US-JNJFOC-20070106391

PATIENT
  Age: 63 Year
  Sex: Female
  Weight: 102.5129 kg

DRUGS (1)
  1. IMODIUM ADVANCED [Suspect]
     Indication: DIARRHOEA
     Dosage: OFF AND ON

REACTIONS (1)
  - DRUG INEFFECTIVE [None]
